FAERS Safety Report 12912830 (Version 7)
Quarter: 2017Q1

REPORT INFORMATION
  Report Type: Report from Study
  Country: None (occurrence: IE)
  Receive Date: 20161104
  Receipt Date: 20170320
  Transmission Date: 20170428
  Serious: Yes (Hospitalization)
  Sender: FDA-Public Use
  Company Number: IE-ABBVIE-16K-229-1715624-00

PATIENT
  Age: 59 Year
  Sex: Female

DRUGS (9)
  1. CLOZARIL [Suspect]
     Active Substance: CLOZAPINE
     Indication: PSYCHOTIC DISORDER
     Route: 048
  2. CLOZARIL [Suspect]
     Active Substance: CLOZAPINE
     Dosage: DOSE INCREASED
     Route: 048
     Dates: start: 2016
  3. NEUPRO [Concomitant]
     Active Substance: ROTIGOTINE
     Indication: PARKINSON^S DISEASE
     Route: 061
  4. ALPRAZOLAM. [Concomitant]
     Active Substance: ALPRAZOLAM
     Indication: MUSCLE SPASMS
  5. DUODOPA [Suspect]
     Active Substance: CARBIDOPA\LEVODOPA
     Dosage: CASSETTE, CONTINUOUS
     Route: 050
     Dates: start: 20120301
  6. CLOZARIL [Suspect]
     Active Substance: CLOZAPINE
     Indication: PARKINSON^S DISEASE
     Route: 048
     Dates: start: 20160823
  7. DUODOPA [Suspect]
     Active Substance: CARBIDOPA\LEVODOPA
     Indication: PARKINSON^S DISEASE
     Dosage: CASSETTE, CONTINUOUS
     Route: 050
     Dates: start: 20120112, end: 20120301
  8. ALPRAZOLAM. [Concomitant]
     Active Substance: ALPRAZOLAM
     Indication: ANXIETY
     Route: 048
  9. AZILECT [Concomitant]
     Active Substance: RASAGILINE MESYLATE
     Indication: PARKINSON^S DISEASE

REACTIONS (10)
  - Depressed mood [Not Recovered/Not Resolved]
  - Paranoia [Recovered/Resolved]
  - Obsessive-compulsive personality disorder [Recovering/Resolving]
  - Antipsychotic drug level increased [Not Recovered/Not Resolved]
  - Muscle spasms [Unknown]
  - Psychotic disorder [Recovered/Resolved]
  - Anxiety [Unknown]
  - Aphasia [Not Recovered/Not Resolved]
  - Treatment noncompliance [Unknown]
  - Thinking abnormal [Not Recovered/Not Resolved]

NARRATIVE: CASE EVENT DATE: 201608
